FAERS Safety Report 4540982-0 (Version None)
Quarter: 2004Q4

REPORT INFORMATION
  Report Type: 
  Country: None (occurrence: None)
  Receive Date: 20041228
  Receipt Date: 20041215
  Transmission Date: 20050328
  Serious: Yes (Hospitalization)
  Sender: FDA-Public Use
  Company Number: SUSI-2004-00882

PATIENT
  Age: 44 Year
  Sex: Female

DRUGS (1)
  1. PENTASA [Suspect]
     Indication: CROHN'S DISEASE
     Dosage: 750 MG, 3X/DAY: TID, ORAL
     Route: 048
     Dates: start: 20041008, end: 20041109

REACTIONS (5)
  - BLOOD CREATINE PHOSPHOKINASE INCREASED [None]
  - LIVER DISORDER [None]
  - MALAISE [None]
  - MYALGIA [None]
  - TRANSAMINASES INCREASED [None]
